FAERS Safety Report 4437482-5 (Version None)
Quarter: 2004Q3

REPORT INFORMATION
  Report Type: 
  Country: None (occurrence: None)
  Receive Date: 20040827
  Receipt Date: 20040820
  Transmission Date: 20050211
  Serious: Yes (Hospitalization)
  Sender: FDA-Public Use
  Company Number: HQWYE477423AUG04

PATIENT
  Age: 69 Year
  Sex: Male

DRUGS (1)
  1. RAPAMUNE [Suspect]
     Indication: PROPHYLAXIS AGAINST TRANSPLANT REJECTION
     Dates: start: 19990709

REACTIONS (5)
  - CARDIOMYOPATHY [None]
  - CHEST WALL MASS [None]
  - LUNG DISORDER [None]
  - PLEURITIC PAIN [None]
  - VENTILATION/PERFUSION SCAN ABNORMAL [None]
